FAERS Safety Report 6348000-9 (Version None)
Quarter: 2009Q3

REPORT INFORMATION
  Report Type: 
  Country: None (occurrence: None)
  Receive Date: 20090910
  Receipt Date: 20090901
  Transmission Date: 20100115
  Serious: Yes (Life-Threatening)
  Sender: FDA-Public Use
  Company Number: TR-SANOFI-SYNTHELABO-A01200909105

PATIENT
  Age: 64 Year
  Sex: Female
  Weight: 54 kg

DRUGS (4)
  1. FLANTADIN [Concomitant]
     Indication: RHEUMATOID ARTHRITIS
     Route: 048
     Dates: start: 20070101
  2. LANSOR [Concomitant]
     Indication: PEPTIC ULCER
     Route: 048
     Dates: start: 20020101
  3. GLEEVEC [Concomitant]
     Indication: CHRONIC MYELOID LEUKAEMIA
     Route: 048
     Dates: start: 19990101
  4. PLAQUENIL [Suspect]
     Indication: RHEUMATOID ARTHRITIS
     Route: 048
     Dates: start: 20090601

REACTIONS (4)
  - DIZZINESS [None]
  - FATIGUE [None]
  - HYPERTENSION [None]
  - PRODUCT QUALITY ISSUE [None]
